FAERS Safety Report 9896302 (Version 2)
Quarter: 2014Q1

REPORT INFORMATION
  Report Type: Spontaneous
  Country: US (occurrence: US)
  Receive Date: 20140213
  Receipt Date: 20140213
  Transmission Date: 20141002
  Serious: No
  Sender: FDA-Public Use
  Company Number: US-BRISTOL-MYERS SQUIBB COMPANY-18826594

PATIENT
  Age: 70 Year
  Sex: Male
  Weight: 111.11 kg

DRUGS (2)
  1. ABATACEPT SUBQ INJECTION 125MG/ML [Suspect]
     Indication: RHEUMATOID ARTHRITIS
     Dosage: LAST DOSE: 07MAY2013
     Route: 058
     Dates: start: 20130420
  2. DILTIAZEM HCL [Concomitant]
     Indication: HYPERTENSION

REACTIONS (4)
  - Muscle tightness [Unknown]
  - Tremor [Unknown]
  - Influenza like illness [Unknown]
  - Bronchitis [Unknown]
